FAERS Safety Report 24410742 (Version 1)
Quarter: 2024Q4

REPORT INFORMATION
  Report Type: Spontaneous
  Country: US (occurrence: US)
  Receive Date: 20241008
  Receipt Date: 20241008
  Transmission Date: 20250115
  Serious: Yes (Other)
  Sender: APOTEX
  Company Number: US-APOTEX-2024AP011621

PATIENT
  Age: 61 Year
  Sex: Female

DRUGS (4)
  1. AMBRISENTAN [Suspect]
     Active Substance: AMBRISENTAN
     Indication: Pulmonary hypertension
     Dosage: UNK
     Route: 065
  2. TADALAFIL [Suspect]
     Active Substance: TADALAFIL
     Indication: Pulmonary hypertension
     Dosage: UNK
     Route: 065
  3. SELEXIPAG [Suspect]
     Active Substance: SELEXIPAG
     Indication: Pulmonary hypertension
     Dosage: UNK
     Route: 065
  4. BUMEX [Suspect]
     Active Substance: BUMETANIDE
     Indication: Pulmonary hypertension
     Dosage: 1 MILLIGRAM, QD
     Route: 065

REACTIONS (4)
  - Ventilation perfusion mismatch [Unknown]
  - Condition aggravated [Unknown]
  - Hypoxia [Recovering/Resolving]
  - Respiratory gas exchange disorder [Unknown]
